FAERS Safety Report 9119478 (Version 7)
Quarter: 2013Q3

REPORT INFORMATION
  Report Type: Spontaneous
  Country: US (occurrence: US)
  Receive Date: 20130226
  Receipt Date: 20130924
  Transmission Date: 20140515
  Serious: Yes (Hospitalization, Other)
  Sender: FDA-Public Use
  Company Number: US-009507513-1302USA011485

PATIENT
  Age: 53 Year
  Sex: Male
  Weight: 73.46 kg

DRUGS (4)
  1. PEGINTRON [Suspect]
     Indication: HEPATITIS C
     Dosage: REDIPEN
     Dates: start: 20130221, end: 20130906
  2. REBETOL [Suspect]
     Indication: HEPATITIS C
     Dosage: 1200 MG, QD
     Route: 048
     Dates: start: 20130221
  3. REBETOL [Suspect]
     Dosage: 600 MG A DAY
     Route: 048
     Dates: start: 2013, end: 20130906
  4. VICTRELIS [Interacting]
     Indication: HEPATITIS C
     Dosage: UNK
     Route: 048
     Dates: start: 20130321, end: 20130906

REACTIONS (30)
  - Anaemia [Unknown]
  - Anaemia [Unknown]
  - Headache [Unknown]
  - Myalgia [Unknown]
  - Injection site reaction [Unknown]
  - Pruritus [Recovering/Resolving]
  - Insomnia [Unknown]
  - Dry skin [Unknown]
  - Mood swings [Unknown]
  - Irritability [Recovering/Resolving]
  - Fatigue [Unknown]
  - Drug interaction [Unknown]
  - Vomiting [Unknown]
  - Nausea [Unknown]
  - Dysphagia [Unknown]
  - Weight decreased [Unknown]
  - Pruritus [Not Recovered/Not Resolved]
  - Cerebrovascular accident [Unknown]
  - Transfusion [Unknown]
  - Red blood cell count decreased [Unknown]
  - White blood cell count decreased [Unknown]
  - Weight decreased [Unknown]
  - Memory impairment [Unknown]
  - Hemiparesis [Unknown]
  - Speech disorder [Unknown]
  - Convulsion [Unknown]
  - Loss of consciousness [Unknown]
  - Muscle twitching [Unknown]
  - Contusion [Unknown]
  - Fall [Unknown]
